FAERS Safety Report 8575371-5 (Version None)
Quarter: 2012Q3

REPORT INFORMATION
  Report Type: 
  Country: None (occurrence: None)
  Receive Date: 20120807
  Receipt Date: 20120803
  Transmission Date: 20120928
  Serious: Yes (Other)
  Sender: FDA-Public Use
  Company Number: US-PFIZER INC-2012189540

PATIENT

DRUGS (1)
  1. CHANTIX [Suspect]
     Dosage: UNK

REACTIONS (5)
  - SOCIAL AVOIDANT BEHAVIOUR [None]
  - DEPRESSION [None]
  - IRRITABILITY [None]
  - ANGER [None]
  - NERVOUSNESS [None]
